FAERS Safety Report 13859151 (Version 2)
Quarter: 2017Q4

REPORT INFORMATION
  Report Type: Spontaneous
  Country: GB (occurrence: GB)
  Receive Date: 20170811
  Receipt Date: 20171106
  Transmission Date: 20180320
  Serious: Yes (Death, Hospitalization)
  Sender: FDA-Public Use
  Company Number: GB-ACCORD-056914

PATIENT
  Age: 77 Year
  Sex: Female
  Weight: 44 kg

DRUGS (8)
  1. TRANEXAMIC ACID. [Suspect]
     Active Substance: TRANEXAMIC ACID
     Indication: PRODUCT USED FOR UNKNOWN INDICATION
  2. IBUPROFEN. [Suspect]
     Active Substance: IBUPROFEN
     Indication: PRODUCT USED FOR UNKNOWN INDICATION
     Dates: end: 20161019
  3. COCODAMOL [Concomitant]
     Active Substance: ACETAMINOPHEN\CODEINE PHOSPHATE
  4. ACETYLSALICYLIC ACID [Suspect]
     Active Substance: ASPIRIN
     Indication: PERIPHERAL VASCULAR DISORDER
     Dosage: PREVIOUSLY RECEIVED FROM 08-NOV-2002 TO 30-JUL-2014
     Route: 048
     Dates: start: 20140630, end: 20170110
  5. GABAPENTIN. [Concomitant]
     Active Substance: GABAPENTIN
  6. GAVISCON [Concomitant]
     Active Substance: ALUMINUM HYDROXIDE\MAGNESIUM CARBONATE
  7. CLOPIDOGREL [Suspect]
     Active Substance: CLOPIDOGREL BISULFATE
     Indication: PERIPHERAL VASCULAR DISORDER
     Route: 048
     Dates: start: 20091204
  8. LANSOPRAZOLE. [Concomitant]
     Active Substance: LANSOPRAZOLE

REACTIONS (8)
  - Dyspepsia [Unknown]
  - Acute left ventricular failure [Fatal]
  - Pain [Unknown]
  - Hiatus hernia [Not Recovered/Not Resolved]
  - Haematemesis [Fatal]
  - Circulatory collapse [Not Recovered/Not Resolved]
  - Gastritis [Fatal]
  - Upper gastrointestinal haemorrhage [Fatal]

NARRATIVE: CASE EVENT DATE: 201610
